FAERS Safety Report 4483960-2 (Version None)
Quarter: 2004Q4

REPORT INFORMATION
  Report Type: 
  Country: None (occurrence: None)
  Receive Date: 20041025
  Receipt Date: 20041012
  Transmission Date: 20050328
  Serious: Yes (Hospitalization)
  Sender: FDA-Public Use
  Company Number: CA-BRISTOL-MYERS SQUIBB COMPANY-12733986

PATIENT
  Age: 79 Year
  Sex: Female

DRUGS (8)
  1. AVALIDE [Suspect]
     Route: 048
     Dates: start: 20040504, end: 20040701
  2. LIPITOR [Concomitant]
     Dates: start: 20040504
  3. NEXIUM [Concomitant]
     Dates: start: 20040504
  4. ADVAIR DISKUS 100/50 [Concomitant]
     Dates: start: 20040504
  5. WELLBUTRIN [Concomitant]
     Dates: start: 20030529
  6. ASPIRIN [Concomitant]
     Dates: start: 20021128
  7. CALCIUM + VITAMIN D [Concomitant]
     Dosage: THERAPY FROM:  ^YEARS AGO^
  8. ATIVAN [Concomitant]
     Dosage: DOSE:  1/2 - 1 TABLET QHS PRN
     Dates: start: 20040504

REACTIONS (6)
  - AORTIC STENOSIS [None]
  - CAROTID ARTERY ATHEROMA [None]
  - CEREBROVASCULAR ACCIDENT [None]
  - CORONARY ARTERY ATHEROSCLEROSIS [None]
  - MITRAL VALVE DISEASE [None]
  - MITRAL VALVE INCOMPETENCE [None]
